FAERS Safety Report 9434378 (Version 5)
Quarter: 2014Q1

REPORT INFORMATION
  Report Type: Spontaneous
  Country: GB (occurrence: GB)
  Receive Date: 20130801
  Receipt Date: 20140327
  Transmission Date: 20141002
  Serious: Yes (Life-Threatening, Other)
  Sender: FDA-Public Use
  Company Number: GB-RANBAXY-2013R1-71605

PATIENT
  Age: 14 Year
  Sex: Female
  Weight: 51 kg

DRUGS (4)
  1. TOPIRAMATE [Suspect]
     Indication: PRODUCT USED FOR UNKNOWN INDICATION
     Dosage: 125 MG, BID
     Route: 048
  2. TOPIRAMATE [Suspect]
     Dosage: UNK
     Route: 048
  3. KEPPRA [Suspect]
     Indication: PRODUCT USED FOR UNKNOWN INDICATION
     Dosage: UNK
     Route: 048
  4. KEPPRA [Suspect]
     Dosage: 1250 MG, BID
     Route: 048

REACTIONS (4)
  - Decreased appetite [Recovering/Resolving]
  - Depression [Recovering/Resolving]
  - Product quality issue [Unknown]
  - Suicidal ideation [Recovering/Resolving]
